FAERS Safety Report 9164000 (Version 2)
Quarter: 2013Q2

REPORT INFORMATION
  Report Type: Report from Study
  Country: US (occurrence: US)
  Receive Date: 20130314
  Receipt Date: 20130419
  Transmission Date: 20140414
  Serious: Yes (Hospitalization, Other)
  Sender: FDA-Public Use
  Company Number: US-ABBOTT-13P-163-1060572-00

PATIENT
  Age: 52 Year
  Sex: Male
  Weight: 81.72 kg

DRUGS (5)
  1. HUMIRA [Suspect]
     Indication: RHEUMATOID ARTHRITIS
     Dates: start: 2008, end: 2010
  2. HUMIRA [Suspect]
     Dates: start: 201202, end: 201203
  3. LISINOPRIL [Concomitant]
     Indication: HYPERTENSION
  4. WELLBUTRIN [Concomitant]
     Indication: DEPRESSION
  5. AMBIEN [Concomitant]
     Indication: INSOMNIA

REACTIONS (3)
  - Carpal tunnel syndrome [Recovered/Resolved]
  - Internal fixation of spine [Recovered/Resolved]
  - Spinal fusion surgery [Recovered/Resolved]
